FAERS Safety Report 20623898 (Version 1)
Quarter: 2022Q1

REPORT INFORMATION
  Report Type: Spontaneous
  Country: HK (occurrence: HK)
  Receive Date: 20220322
  Receipt Date: 20220322
  Transmission Date: 20220423
  Serious: Yes (Other)
  Sender: FDA-Public Use
  Company Number: HK-LUPIN PHARMACEUTICALS INC.-2022-03882

PATIENT
  Age: 46 Year
  Sex: Male

DRUGS (3)
  1. VANCOMYCIN [Suspect]
     Active Substance: VANCOMYCIN
     Indication: Osteomyelitis chronic
     Dosage: UNK
     Route: 065
  2. GENTAMICIN [Concomitant]
     Active Substance: GENTAMICIN
     Indication: Osteomyelitis chronic
     Dosage: UNK
     Route: 065
  3. CLOXACILLIN [Concomitant]
     Active Substance: CLOXACILLIN
     Indication: Osteomyelitis chronic
     Dosage: UNK
     Route: 042

REACTIONS (2)
  - Drug reaction with eosinophilia and systemic symptoms [Recovered/Resolved]
  - Acute kidney injury [Recovered/Resolved]
